FAERS Safety Report 10447352 (Version 1)
Quarter: 2014Q3

REPORT INFORMATION
  Report Type: Spontaneous
  Country: US (occurrence: US)
  Receive Date: 20140911
  Receipt Date: 20140911
  Transmission Date: 20150326
  Serious: No
  Sender: FDA-Public Use
  Company Number: US-GLAXOSMITHKLINE-A1078651A

PATIENT
  Age: 54 Year
  Sex: Male

DRUGS (1)
  1. EPIVIR HBV [Suspect]
     Active Substance: LAMIVUDINE
     Indication: TRANSPLANT
     Route: 065
     Dates: start: 20140618

REACTIONS (1)
  - Treatment noncompliance [Unknown]
